FAERS Safety Report 25380201 (Version 2)
Quarter: 2025Q2

REPORT INFORMATION
  Report Type: Spontaneous
  Country: CH (occurrence: CH)
  Receive Date: 20250530
  Receipt Date: 20250613
  Transmission Date: 20250716
  Serious: Yes (Death, Other)
  Sender: SANOFI AVENTIS
  Company Number: CH-SA-2025SA152396

PATIENT
  Age: 85 Year
  Sex: Male

DRUGS (10)
  1. DUPIXENT [Suspect]
     Active Substance: DUPILUMAB
     Indication: Neurodermatitis
     Dates: start: 20250218, end: 20250319
  2. CALCIMAGON D3 FORTE [Concomitant]
  3. TORSEMIDE [Concomitant]
     Active Substance: TORSEMIDE
  4. AMELUZ [Concomitant]
     Active Substance: AMINOLEVULINIC ACID HYDROCHLORIDE
  5. DESLORATADINE [Concomitant]
     Active Substance: DESLORATADINE
  6. IBANDRONATE SODIUM [Concomitant]
     Active Substance: IBANDRONATE SODIUM
  7. MAGNESIUM DIASPORAL 300 [Concomitant]
  8. METOLAZONE [Concomitant]
     Active Substance: METOLAZONE
  9. MINERAL OIL [Concomitant]
     Active Substance: MINERAL OIL
  10. CHOLECALCIFEROL [Concomitant]
     Active Substance: CHOLECALCIFEROL

REACTIONS (1)
  - Death [Fatal]

NARRATIVE: CASE EVENT DATE: 20250412
